FAERS Safety Report 5183004-3 (Version None)
Quarter: 2006Q4

REPORT INFORMATION
  Report Type: 
  Country: None (occurrence: None)
  Receive Date: 20061220
  Receipt Date: 20051201
  Transmission Date: 20070319
  Serious: Yes (Other)
  Sender: FDA-Public Use
  Company Number: US-GLAXOSMITHKLINE-A0584234A

PATIENT
  Age: 72 Year
  Sex: Female

DRUGS (4)
  1. NICODERM CQ [Suspect]
     Dosage: 21MG UNKNOWN
  2. COMMIT [Suspect]
     Dosage: 4MG UNKNOWN
  3. NICORETTE [Suspect]
     Dosage: 4MG UNKNOWN
  4. NICODERM CQ [Suspect]
     Dosage: 21MG UNKNOWN

REACTIONS (4)
  - APHTHOUS STOMATITIS [None]
  - APPLICATION SITE ERYTHEMA [None]
  - DRUG ABUSER [None]
  - FLATULENCE [None]
